FAERS Safety Report 6943889-4 (Version None)
Quarter: 2010Q3

REPORT INFORMATION
  Report Type: 
  Country: None (occurrence: None)
  Receive Date: 20100826
  Receipt Date: 20100820
  Transmission Date: 20110219
  Serious: Yes (Hospitalization, Disabling)
  Sender: FDA-Public Use
  Company Number: A0877701A

PATIENT
  Sex: Male

DRUGS (1)
  1. AVANDAMET [Suspect]
     Indication: DIABETES MELLITUS
     Route: 048
     Dates: start: 20050101, end: 20070101

REACTIONS (5)
  - CARDIAC DISORDER [None]
  - DISABILITY [None]
  - MYOCARDIAL INFARCTION [None]
  - STENT PLACEMENT [None]
  - VASCULAR GRAFT [None]
